FAERS Safety Report 14275870 (Version 1)
Quarter: 2017Q4

REPORT INFORMATION
  Report Type: Spontaneous
  Country: US (occurrence: US)
  Receive Date: 20171211
  Receipt Date: 20171211
  Transmission Date: 20180321
  Serious: Yes (Other)
  Sender: FDA-Public Use
  Company Number: US-OTSUKA-2017_006230

PATIENT
  Sex: Male

DRUGS (2)
  1. DEPAKOTE [Concomitant]
     Active Substance: DIVALPROEX SODIUM
     Indication: AFFECTIVE DISORDER
     Dosage: UNK
     Route: 065
  2. ABILIFY [Suspect]
     Active Substance: ARIPIPRAZOLE
     Indication: SCHIZOAFFECTIVE DISORDER BIPOLAR TYPE
     Dosage: 15 MG, QD
     Route: 065
     Dates: end: 201509

REACTIONS (5)
  - Type 2 diabetes mellitus [Unknown]
  - Eructation [Unknown]
  - Treatment noncompliance [Unknown]
  - Hyperphagia [Unknown]
  - Hypersexuality [Recovered/Resolved]

NARRATIVE: CASE EVENT DATE: 2013
